FAERS Safety Report 12217352 (Version 2)
Quarter: 2016Q2

REPORT INFORMATION
  Report Type: Spontaneous
  Country: US (occurrence: US)
  Receive Date: 20160329
  Receipt Date: 20160614
  Transmission Date: 20160815
  Serious: Yes (Hospitalization, Other)
  Sender: FDA-Public Use
  Company Number: US-GLAXOSMITHKLINE-US2016041003

PATIENT
  Age: 57 Year
  Sex: Female
  Weight: 94.33 kg

DRUGS (12)
  1. LEVOTHYROXINE. [Concomitant]
     Active Substance: LEVOTHYROXINE
  2. DILTIAZEM HYDROCHLORIDE EXTENDED RELEASE [Concomitant]
     Active Substance: DILTIAZEM HYDROCHLORIDE
  3. CITALOPRAM [Concomitant]
     Active Substance: CITALOPRAM HYDROBROMIDE
  4. TAMOXIFEN [Concomitant]
     Active Substance: TAMOXIFEN
  5. VALPROIC ACID. [Suspect]
     Active Substance: VALPROIC ACID
  6. LAMICTAL [Suspect]
     Active Substance: LAMOTRIGINE
     Indication: BIPOLAR DISORDER
     Dosage: 200 MG, QD
     Route: 048
     Dates: start: 2012
  7. LITHIUM. [Concomitant]
     Active Substance: LITHIUM
  8. PRAVASTATIN [Concomitant]
     Active Substance: PRAVASTATIN\PRAVASTATIN SODIUM
  9. GABAPENTIN. [Concomitant]
     Active Substance: GABAPENTIN
  10. OMEPRAZOLE. [Concomitant]
     Active Substance: OMEPRAZOLE
  11. TOPIRAMATE. [Concomitant]
     Active Substance: TOPIRAMATE
  12. ASPIRIN. [Concomitant]
     Active Substance: ASPIRIN

REACTIONS (15)
  - Pyelonephritis chronic [Recovered/Resolved]
  - Muscle rigidity [Recovered/Resolved]
  - Kidney infection [Unknown]
  - Drug hypersensitivity [Unknown]
  - Flank pain [Recovered/Resolved]
  - Renal disorder [Recovered/Resolved]
  - Hospitalisation [Recovered/Resolved]
  - Nephrectomy [Unknown]
  - Blood urine present [Recovered/Resolved]
  - Nausea [Recovered/Resolved]
  - Renal abscess [Recovered/Resolved]
  - Increased appetite [Unknown]
  - Nephrolithiasis [Recovered/Resolved]
  - Stag horn calculus [Unknown]
  - Tremor [Recovered/Resolved]

NARRATIVE: CASE EVENT DATE: 2015
